FAERS Safety Report 14934203 (Version 1)
Quarter: 2018Q2

REPORT INFORMATION
  Report Type: Report from Study
  Country: FR (occurrence: FR)
  Receive Date: 20180524
  Receipt Date: 20180524
  Transmission Date: 20180711
  Serious: Yes (Other)
  Sender: FDA-Public Use
  Company Number: FR-ROCHE-2126755

PATIENT
  Age: 74 Year
  Sex: Male
  Weight: 55 kg

DRUGS (11)
  1. ATEZOLIZUMAB. [Suspect]
     Active Substance: ATEZOLIZUMAB
     Indication: MANTLE CELL LYMPHOMA
     Dosage: ON 20/APR/2018 AT 16:40, HE RECEIVED THE MOST RECENT DOSE OF ATEZOLIZUMAB PRIOR TO EVENT ONSET.
     Route: 042
     Dates: start: 20180420
  2. MODOPAR [Concomitant]
     Active Substance: BENSERAZIDE HYDROCHLORIDE\LEVODOPA
     Route: 065
     Dates: start: 201101
  3. MELATONINE [Concomitant]
     Active Substance: MELATONIN
     Route: 065
     Dates: start: 201803
  4. LASILIX [Concomitant]
     Active Substance: FUROSEMIDE
     Indication: OEDEMA PERIPHERAL
     Route: 065
     Dates: start: 20180504
  5. MIANSERINE [Concomitant]
     Active Substance: MIANSERIN HYDROCHLORIDE
     Route: 065
     Dates: start: 201803
  6. AUGMENTIN [Concomitant]
     Active Substance: AMOXICILLIN\CLAVULANATE POTASSIUM
     Indication: PYREXIA
     Route: 065
     Dates: start: 20180427, end: 20180503
  7. OBINUTUZUMAB. [Suspect]
     Active Substance: OBINUTUZUMAB
     Indication: MANTLE CELL LYMPHOMA
     Dosage: ON 20/APR/2018 AT 10:35, HE RECEIVED THE MOST RECENT DOSE OF OBINUTUZUMAB PRIOR TO EVENT ONSET.?ON D
     Route: 042
     Dates: start: 20180420
  8. SINEMET [Concomitant]
     Active Substance: CARBIDOPA\LEVODOPA
     Route: 065
     Dates: start: 201803
  9. ARANESP [Concomitant]
     Active Substance: DARBEPOETIN ALFA
     Indication: ANAEMIA
     Route: 065
     Dates: start: 20180511
  10. AZILECT [Concomitant]
     Active Substance: RASAGILINE MESYLATE
     Route: 065
     Dates: start: 201101
  11. NEUPRO [Concomitant]
     Active Substance: ROTIGOTINE
     Route: 065
     Dates: start: 201101

REACTIONS (1)
  - Respiratory distress [Recovered/Resolved]

NARRATIVE: CASE EVENT DATE: 20180420
